FAERS Safety Report 9300378 (Version 1)
Quarter: 2013Q2

REPORT INFORMATION
  Report Type: Spontaneous
  Country: BR (occurrence: BR)
  Receive Date: 20130521
  Receipt Date: 20130521
  Transmission Date: 20140414
  Serious: Yes (Other)
  Sender: FDA-Public Use
  Company Number: BR-SANOFI-AVENTIS-2013SA047857

PATIENT
  Age: 64 Year
  Sex: Male
  Weight: 74 kg

DRUGS (8)
  1. CLOPIDOGREL BISULFATE [Suspect]
     Indication: INFARCTION
     Route: 065
     Dates: start: 201303, end: 20130504
  2. AAS [Suspect]
     Indication: INFARCTION
     Route: 065
     Dates: start: 201303, end: 20130504
  3. ZETIA [Concomitant]
     Dates: start: 201303
  4. ENALAPRIL [Concomitant]
     Dates: start: 201303
  5. PROCORALAN [Concomitant]
     Dates: start: 201303
  6. SPIRONOLACTONE [Concomitant]
     Dates: start: 201303
  7. PANTOPRAZOLE [Concomitant]
     Dates: start: 201303
  8. CHLORTALIDONE [Concomitant]
     Dates: start: 201303

REACTIONS (1)
  - Asthma [Unknown]
